FAERS Safety Report 20742442 (Version 1)
Quarter: 2022Q2

REPORT INFORMATION
  Report Type: Spontaneous
  Country: CA (occurrence: CA)
  Receive Date: 20220424
  Receipt Date: 20220424
  Transmission Date: 20220721
  Serious: Yes (Hospitalization)
  Sender: FDA-Public Use
  Company Number: CA-TEVA-2022-CA-2028855

PATIENT
  Age: 72 Year
  Sex: Male

DRUGS (1)
  1. PAROXETINE [Suspect]
     Active Substance: PAROXETINE
     Route: 065

REACTIONS (5)
  - Delirium [Unknown]
  - Palpitations [Unknown]
  - Pneumonia aspiration [Unknown]
  - Tremor [Unknown]
  - Urinary tract infection [Unknown]
